FAERS Safety Report 4749540-6 (Version None)
Quarter: 2005Q3

REPORT INFORMATION
  Report Type: 
  Country: None (occurrence: None)
  Receive Date: 20050822
  Receipt Date: 20050811
  Transmission Date: 20060218
  Serious: Yes (Other)
  Sender: FDA-Public Use
  Company Number: NL-JNJFOC-20050803093

PATIENT
  Sex: Female

DRUGS (8)
  1. PROPULSID [Suspect]
     Indication: DRUG USE FOR UNKNOWN INDICATION
     Route: 048
     Dates: start: 20020321, end: 20020324
  2. TAMBOCOR [Interacting]
     Indication: DRUG USE FOR UNKNOWN INDICATION
     Route: 048
  3. ACENOCOUMAROL DUMEX [Concomitant]
     Route: 048
  4. GLICLAZIDE [Concomitant]
     Route: 048
  5. VOLCOLON [Concomitant]
     Route: 065
  6. LEGENDAL [Concomitant]
     Route: 065
  7. LOSEC MUPS [Concomitant]
     Route: 048
  8. METFORMINE HCL [Concomitant]
     Route: 048

REACTIONS (2)
  - ARRHYTHMIA [None]
  - DRUG INTERACTION [None]
